FAERS Safety Report 5311238-3 (Version None)
Quarter: 2007Q2

REPORT INFORMATION
  Report Type: 
  Country: None (occurrence: None)
  Receive Date: 20070430
  Receipt Date: 20070417
  Transmission Date: 20071010
  Serious: Yes (Other)
  Sender: FDA-Public Use
  Company Number: PHRM2007FR01291

PATIENT
  Age: 35 Year
  Sex: Male

DRUGS (3)
  1. HALDOL [Concomitant]
     Route: 048
  2. TERCIAN [Concomitant]
     Route: 048
  3. TRILEPTAL [Suspect]
     Indication: BIPOLAR DISORDER
     Dosage: 900 MG, BID
     Route: 048

REACTIONS (2)
  - EPILEPSY [None]
  - HYPONATRAEMIA [None]
